FAERS Safety Report 24247506 (Version 1)
Quarter: 2024Q3

REPORT INFORMATION
  Report Type: Spontaneous
  Country: IT (occurrence: IT)
  Receive Date: 20240826
  Receipt Date: 20240826
  Transmission Date: 20241017
  Serious: Yes (Life-Threatening, Hospitalization, Other)
  Sender: BIOVITRUM
  Company Number: IT-BIOVITRUM-2023-IT-017062

PATIENT
  Age: 55 Year
  Sex: Female

DRUGS (26)
  1. ANAKINRA [Suspect]
     Active Substance: ANAKINRA
     Indication: Cytokine release syndrome
     Dosage: 1000MG DAILY FOR 7 DAYS
     Route: 065
     Dates: end: 2022
  2. ANAKINRA [Suspect]
     Active Substance: ANAKINRA
     Indication: Immune effector cell-associated neurotoxicity syndrome
     Route: 065
  3. METHYLPREDNISOLONE [Suspect]
     Active Substance: METHYLPREDNISOLONE
     Indication: Immune effector cell-associated neurotoxicity syndrome
     Dosage: 100 MILLIGRAM, QD
     Route: 065
  4. METHYLPREDNISOLONE [Suspect]
     Active Substance: METHYLPREDNISOLONE
     Indication: Cytokine release syndrome
     Dosage: 100 MILLIGRAM, QD
     Route: 065
     Dates: start: 2022, end: 2022
  5. DEXAMETHASONE [Suspect]
     Active Substance: DEXAMETHASONE
     Indication: Cytokine release syndrome
     Route: 065
  6. DEXAMETHASONE [Suspect]
     Active Substance: DEXAMETHASONE
     Indication: Diffuse large B-cell lymphoma
     Dosage: R-DHAP REGIMEN AS SECOND LINE THERAPY, ACTION TAKEN-UNKNOWN
     Route: 065
     Dates: start: 2021, end: 2021
  7. DEXAMETHASONE [Suspect]
     Active Substance: DEXAMETHASONE
     Indication: Immune effector cell-associated neurotoxicity syndrome
     Dosage: ADMINISTERED AT EACH LUMBAR PUNCTURE. LATER, TAPER WAS INITIATED
     Route: 065
     Dates: start: 2021, end: 2021
  8. ETOPOSIDE [Suspect]
     Active Substance: ETOPOSIDE
     Indication: Diffuse large B-cell lymphoma
     Dosage: R-IEV REGIMEN
     Route: 065
     Dates: start: 2021
  9. RITUXIMAB [Suspect]
     Active Substance: RITUXIMAB
     Indication: Diffuse large B-cell lymphoma
     Dosage: R-DHAP REGIMEN AS SECOND LINE THERAPY
     Route: 065
     Dates: start: 2021, end: 2021
  10. CYTARABINE [Suspect]
     Active Substance: CYTARABINE
     Indication: Diffuse large B-cell lymphoma
     Dosage: R-DHAP REGIMEN AS SECOND LINE THERAPY
     Route: 065
     Dates: start: 2021, end: 2021
  11. CYCLOPHOSPHAMIDE [Suspect]
     Active Substance: CYCLOPHOSPHAMIDE
     Indication: Diffuse large B-cell lymphoma
     Dosage: R-COMP REGIMEN AS FIRST LINE THERAPY
     Route: 065
     Dates: start: 2021, end: 2021
  12. PREDNISONE [Suspect]
     Active Substance: PREDNISONE
     Indication: Diffuse large B-cell lymphoma
     Dosage: R-COMP REGIMEN AS FIRST LINE THERAPY
     Route: 065
     Dates: start: 2021, end: 2021
  13. VINCRISTINE [Suspect]
     Active Substance: VINCRISTINE
     Indication: Diffuse large B-cell lymphoma
     Dosage: R-COMP REGIMEN AS FIRST LINE THERAPY
     Route: 065
     Dates: start: 2021, end: 2021
  14. EPIRUBICIN [Suspect]
     Active Substance: EPIRUBICIN
     Indication: Diffuse large B-cell lymphoma
     Dosage: R-IEV REGIMEN
     Route: 065
     Dates: start: 2021
  15. AXICABTAGENE CILOLEUCEL [Suspect]
     Active Substance: AXICABTAGENE CILOLEUCEL
     Indication: Diffuse large B-cell lymphoma
     Dosage: 144 INTO 10 PLEDGE 6 CD3 PLUST CELLS (80.8 PERCENT CD19-CAR-T POSITIVE; 3,8:1 CD4:CD8 RATIO).
     Route: 050
  16. CISPLATIN [Suspect]
     Active Substance: CISPLATIN
     Indication: Diffuse large B-cell lymphoma
     Dosage: R-DHAP REGIMEN AS SECOND LINE THERAPY
     Route: 065
     Dates: start: 2021, end: 2021
  17. IFOSFAMIDE [Suspect]
     Active Substance: IFOSFAMIDE
     Indication: Diffuse large B-cell lymphoma
     Dosage: R-IEV REGIMEN
     Route: 065
     Dates: start: 2021
  18. DOXORUBICIN [Suspect]
     Active Substance: DOXORUBICIN
     Indication: Diffuse large B-cell lymphoma
     Dosage: R-COMP REGIMEN AS FIRST LINE THERAPY
     Route: 065
     Dates: start: 2021, end: 2021
  19. FLUDARABINE [Suspect]
     Active Substance: FLUDARABINE PHOSPHATE
     Indication: Chemotherapy
     Dosage: R-COMP REGIMEN AS FIRST LINE THERAPY
     Route: 065
     Dates: start: 202101, end: 2022
  20. FLUDARABINE [Suspect]
     Active Substance: FLUDARABINE PHOSPHATE
     Indication: Diffuse large B-cell lymphoma
     Dosage: R-COMP REGIMEN AS FIRST LINE THERAPY
     Route: 065
  21. ACYCLOVIR [Concomitant]
     Active Substance: ACYCLOVIR
     Indication: Antiviral prophylaxis
     Dosage: 400 MILLIGRAM, BID
     Route: 065
     Dates: start: 2022, end: 2022
  22. LEVOFLOXACIN [Concomitant]
     Active Substance: LEVOFLOXACIN
     Indication: Antibiotic prophylaxis
     Dosage: 750 MILLIGRAM,QD
     Route: 065
     Dates: start: 2022, end: 2022
  23. RITUXIMAB [Concomitant]
     Active Substance: RITUXIMAB
     Indication: Diffuse large B-cell lymphoma
     Dosage: R-COMP REGIMEN AS FIRST LINE THERAPY
     Route: 065
     Dates: start: 2021, end: 2021
  24. RITUXIMAB [Concomitant]
     Active Substance: RITUXIMAB
     Dosage: R-IEV REGIMEN
     Route: 065
  25. TOCILIZUMAB [Concomitant]
     Active Substance: TOCILIZUMAB
     Indication: Immune effector cell-associated neurotoxicity syndrome
     Dosage: 2 DOSES
     Route: 065
     Dates: start: 2022, end: 2022
  26. TOCILIZUMAB [Concomitant]
     Active Substance: TOCILIZUMAB
     Indication: Cytokine release syndrome

REACTIONS (6)
  - Bronchopulmonary aspergillosis [Recovered/Resolved]
  - Coma [Recovering/Resolving]
  - Aspergillus infection [Recovered/Resolved]
  - Cytokine release syndrome [Recovering/Resolving]
  - Immune effector cell-associated neurotoxicity syndrome [Recovered/Resolved]
  - Disease progression [Recovered/Resolved]

NARRATIVE: CASE EVENT DATE: 20210501
